FAERS Safety Report 5258137-3 (Version None)
Quarter: 2007Q1

REPORT INFORMATION
  Report Type: 
  Country: None (occurrence: None)
  Receive Date: 20070307
  Receipt Date: 20070301
  Transmission Date: 20070707
  Serious: Yes (Hospitalization)
  Sender: FDA-Public Use
  Company Number: US-BOEHRINGER INGELHEIM PHARMACEUTICALS, INC.-2007-BP-02981BP

PATIENT
  Sex: Female
  Weight: 37 kg

DRUGS (7)
  1. TIPRANAVIR/RITONAVIR SOLUTION [Suspect]
     Indication: HIV INFECTION
     Dosage: TPV/RTV 900/240MG
     Route: 048
  2. TRUVADA [Concomitant]
     Indication: HIV INFECTION
     Route: 048
  3. CLARITHROMYCIN [Concomitant]
     Indication: OPPORTUNISTIC INFECTION PROPHYLAXIS
     Route: 048
  4. BACTRIM [Concomitant]
     Indication: OPPORTUNISTIC INFECTION PROPHYLAXIS
     Route: 048
  5. FLUCONAZOLE [Concomitant]
     Indication: OPPORTUNISTIC INFECTION PROPHYLAXIS
     Route: 048
  6. ETHAMBUTOL HYDROCHLORIDE [Concomitant]
     Indication: OPPORTUNISTIC INFECTION PROPHYLAXIS
  7. CIPROFLOXACIN [Concomitant]
     Indication: OPPORTUNISTIC INFECTION PROPHYLAXIS
     Dosage: 1000MG/10ML
     Route: 048

REACTIONS (3)
  - CHILLS [None]
  - PNEUMONIA PNEUMOCOCCAL [None]
  - PYREXIA [None]
